FAERS Safety Report 8029147-8 (Version None)
Quarter: 2012Q1

REPORT INFORMATION
  Report Type: 
  Country: None (occurrence: None)
  Receive Date: 20120106
  Receipt Date: 20120103
  Transmission Date: 20120608
  Serious: Yes (Life-Threatening, Other)
  Sender: FDA-Public Use
  Company Number: PHHY2011BR106588

PATIENT
  Sex: Female
  Weight: 93 kg

DRUGS (2)
  1. OMEPRAZOLE [Concomitant]
     Indication: GASTRITIS
     Dosage: 4 DF A DAY
     Route: 048
  2. DIOVAN HCT [Suspect]
     Indication: HYPERTENSION
     Dosage: 1 DF (320/25 MG), DAILY
     Route: 048

REACTIONS (10)
  - SINUSITIS [None]
  - FATIGUE [None]
  - DIZZINESS [None]
  - NAUSEA [None]
  - ASTHMA [None]
  - INSOMNIA [None]
  - INCORRECT DOSE ADMINISTERED [None]
  - COUGH [None]
  - ASTHENIA [None]
  - NASOPHARYNGITIS [None]
